FAERS Safety Report 8523113-1 (Version None)
Quarter: 2012Q3

REPORT INFORMATION
  Report Type: 
  Country: None (occurrence: None)
  Receive Date: 20120720
  Receipt Date: 20120713
  Transmission Date: 20120928
  Serious: No
  Sender: FDA-Public Use
  Company Number: US-PFIZER INC-2012172126

PATIENT
  Sex: Female
  Weight: 50.794 kg

DRUGS (2)
  1. TIROSINT [Suspect]
     Indication: HYPOTHYROIDISM
     Dosage: 13 UG, 1X/DAY
  2. LEVOXYL [Suspect]
     Indication: HYPOTHYROIDISM
     Dosage: TAKING HALF OF A 25MCG TABLET A DAY
     Dates: start: 20120101, end: 20120101

REACTIONS (1)
  - ABDOMINAL DISCOMFORT [None]
